FAERS Safety Report 4975028-3 (Version None)
Quarter: 2006Q2

REPORT INFORMATION
  Report Type: 
  Country: None (occurrence: None)
  Receive Date: 20060418
  Receipt Date: 20060407
  Transmission Date: 20061013
  Serious: Yes (Other)
  Sender: FDA-Public Use
  Company Number: FR-JNJFOC-20060100960

PATIENT
  Age: 86 Year
  Sex: Female

DRUGS (3)
  1. RISPERDAL [Suspect]
     Route: 048
     Dates: start: 20051212, end: 20051223
  2. STABLON [Concomitant]
     Indication: DEPRESSION
     Dosage: DOSE = TABLET
  3. XANAX [Concomitant]
     Indication: ANXIETY

REACTIONS (1)
  - LEUKOPENIA [None]
